FAERS Safety Report 12379727 (Version 1)
Quarter: 2016Q2

REPORT INFORMATION
  Report Type: Spontaneous
  Country: US (occurrence: US)
  Receive Date: 20160518
  Receipt Date: 20160518
  Transmission Date: 20160815
  Serious: Yes (Other)
  Sender: FDA-Public Use
  Company Number: US-AMGEN-USASP2016061632

PATIENT
  Age: 71 Year
  Sex: Female

DRUGS (2)
  1. CIPRO [Suspect]
     Active Substance: CIPROFLOXACIN HYDROCHLORIDE
     Indication: CYSTITIS
     Dosage: UNK
     Route: 065
  2. ENBREL [Suspect]
     Active Substance: ETANERCEPT
     Indication: RHEUMATOID ARTHRITIS
     Dosage: 50 MG, QWK
     Route: 065

REACTIONS (9)
  - Drug resistance [Unknown]
  - Arthralgia [Unknown]
  - Drug ineffective [Unknown]
  - Malaise [Unknown]
  - Tearfulness [Unknown]
  - Laryngitis [Unknown]
  - Uveitis [Unknown]
  - Cystitis [Unknown]
  - Bronchitis [Unknown]
